FAERS Safety Report 20130280 (Version 3)
Quarter: 2022Q1

REPORT INFORMATION
  Report Type: Spontaneous
  Country: US (occurrence: None)
  Receive Date: 20211130
  Receipt Date: 20220113
  Transmission Date: 20220423
  Serious: No
  Sender: FDA-Public Use
  Company Number: 2021A792891

PATIENT
  Age: 29344 Day
  Sex: Female
  Weight: 77.1 kg

DRUGS (3)
  1. BYDUREON BCISE [Suspect]
     Active Substance: EXENATIDE
     Indication: Type 2 diabetes mellitus
     Route: 058
     Dates: start: 2021
  2. BYDUREON BCISE [Suspect]
     Active Substance: EXENATIDE
     Indication: Type 2 diabetes mellitus
     Dosage: 2 MG USUALLY 10-14 DAYS
     Route: 058
     Dates: start: 2021
  3. BYDUREON [Concomitant]
     Active Substance: EXENATIDE
     Dates: start: 2020

REACTIONS (5)
  - Blood glucose fluctuation [Unknown]
  - Device delivery system issue [Unknown]
  - Wrong technique in device usage process [Unknown]
  - Device leakage [Unknown]
  - Product use issue [Unknown]

NARRATIVE: CASE EVENT DATE: 20211101
